FAERS Safety Report 9343016 (Version 1)
Quarter: 2013Q2

REPORT INFORMATION
  Report Type: Spontaneous
  Country: IN (occurrence: IN)
  Receive Date: 20130611
  Receipt Date: 20130611
  Transmission Date: 20140414
  Serious: Yes (Death, Other)
  Sender: FDA-Public Use
  Company Number: IN-009507513-1306IND004414

PATIENT
  Age: 0 Day
  Sex: 0

DRUGS (1)
  1. JANUMET [Suspect]
     Dosage: 50/500 MG, QD
     Route: 048

REACTIONS (1)
  - Myocardial infarction [Fatal]
